FAERS Safety Report 25171205 (Version 1)
Quarter: 2025Q2

REPORT INFORMATION
  Report Type: Spontaneous
  Country: FR (occurrence: FR)
  Receive Date: 20250408
  Receipt Date: 20250408
  Transmission Date: 20250716
  Serious: Yes (Hospitalization)
  Sender: BIOVITRUM
  Company Number: None

PATIENT
  Age: 43 Year
  Sex: Female
  Weight: 110 kg

DRUGS (11)
  1. KINERET [Suspect]
     Active Substance: ANAKINRA
     Indication: Still^s disease
     Dates: start: 20240829, end: 20240917
  2. PANTOPRAZOLE ARROW GENERICS [Concomitant]
     Indication: Product used for unknown indication
     Dates: start: 20240823, end: 20240924
  3. FUNGIZONE [Concomitant]
     Active Substance: AMPHOTERICIN B
     Indication: Oral fungal infection
     Dates: start: 20240823, end: 20241001
  4. RACECADOTRIL ARROW [Concomitant]
     Indication: Diarrhoea
     Dates: start: 20240828, end: 20240910
  5. ALFACALCIDOL [Concomitant]
     Active Substance: ALFACALCIDOL
     Indication: Thyroidectomy
  6. CALCIUM\CHOLECALCIFEROL [Concomitant]
     Active Substance: CALCIUM\CHOLECALCIFEROL
     Indication: Mineral supplementation
  7. LOVENOX [Concomitant]
     Active Substance: ENOXAPARIN SODIUM
     Indication: Thrombosis prophylaxis
     Dates: start: 20240902, end: 20240924
  8. LEVOTHYROXINE SODIUM [Concomitant]
     Active Substance: LEVOTHYROXINE SODIUM
     Indication: Thyroidectomy
  9. PREVNAR 20 [Concomitant]
     Active Substance: PNEUMOCOCCAL 20-VALENT CONJUGATE VACCINE
     Indication: Immunisation
     Dates: start: 20240902, end: 20240902
  10. DOLIPRANE [Concomitant]
     Active Substance: ACETAMINOPHEN
     Indication: Pyrexia
     Dates: start: 20240821
  11. MELATONIN [Concomitant]
     Active Substance: MELATONIN
     Indication: Sleep disorder
     Dates: start: 20240820, end: 20240924

REACTIONS (2)
  - Rash maculo-papular [Recovered/Resolved]
  - Eosinophilia [Recovered/Resolved]

NARRATIVE: CASE EVENT DATE: 20240903
